FAERS Safety Report 20974580 (Version 1)
Quarter: 2022Q2

REPORT INFORMATION
  Report Type: Spontaneous
  Country: JP (occurrence: JP)
  Receive Date: 20220617
  Receipt Date: 20220617
  Transmission Date: 20220721
  Serious: Yes (Other)
  Sender: FDA-Public Use
  Company Number: JP-NOVARTISPH-NVSJ2020JP007802

PATIENT
  Age: 2 Year

DRUGS (2)
  1. AFINITOR [Suspect]
     Active Substance: EVEROLIMUS
     Indication: Epilepsy
     Dosage: 1.5 MG
     Route: 048
  2. AFINITOR [Suspect]
     Active Substance: EVEROLIMUS
     Indication: Tuberous sclerosis complex
     Dosage: 2 MG
     Route: 048

REACTIONS (2)
  - Seizure [Recovering/Resolving]
  - Postoperative wound infection [Recovered/Resolved]
